FAERS Safety Report 12220340 (Version 1)
Quarter: 2016Q1

REPORT INFORMATION
  Report Type: Spontaneous
  Country: US (occurrence: None)
  Receive Date: 20160329
  Receipt Date: 20160329
  Transmission Date: 20160526
  Serious: Yes (Hospitalization)
  Sender: FDA-Public Use
  Company Number: None

PATIENT
  Age: 81 Year
  Sex: Male
  Weight: 78.2 kg

DRUGS (1)
  1. WARFARIN [Suspect]
     Active Substance: WARFARIN
     Dosage: MG PO
     Route: 048
     Dates: start: 20130816

REACTIONS (6)
  - Iron deficiency [None]
  - Haemoglobin decreased [None]
  - Haematocrit decreased [None]
  - Mallory-Weiss syndrome [None]
  - Upper gastrointestinal haemorrhage [None]
  - Erosive oesophagitis [None]

NARRATIVE: CASE EVENT DATE: 20151205
